FAERS Safety Report 7552230-8 (Version None)
Quarter: 2011Q2

REPORT INFORMATION
  Report Type: 
  Country: None (occurrence: None)
  Receive Date: 20110616
  Receipt Date: 20041215
  Transmission Date: 20111010
  Serious: Yes (Hospitalization)
  Sender: FDA-Public Use
  Company Number: PHHO2004CO16012

PATIENT
  Sex: Male

DRUGS (2)
  1. DIOVAN [Suspect]
     Indication: HYPERTENSION
     Dosage: 40 MG, QD
     Route: 048
     Dates: start: 20041001
  2. ASPIRIN [Concomitant]

REACTIONS (3)
  - CARDIOMEGALY [None]
  - BLOOD PRESSURE INCREASED [None]
  - GAIT DISTURBANCE [None]
